FAERS Safety Report 10154216 (Version 1)
Quarter: 2014Q2

REPORT INFORMATION
  Report Type: Spontaneous
  Country: US (occurrence: None)
  Receive Date: 20140505
  Receipt Date: 20140505
  Transmission Date: 20141212
  Serious: Yes (Death, Life-Threatening, Hospitalization)
  Sender: FDA-Public Use
  Company Number: None

PATIENT
  Age: 40 Year
  Sex: Male
  Weight: 81.65 kg

DRUGS (1)
  1. AXIRON [Suspect]
     Indication: BLOOD TESTOSTERONE DECREASED
     Dosage: APPLIED TO A SURFACE, USUALLY THE SKIN; ONCE DAILY
     Route: 061
     Dates: start: 20131201, end: 20140217

REACTIONS (5)
  - Headache [None]
  - Hypoaesthesia [None]
  - Dizziness [None]
  - Cerebrovascular accident [None]
  - Brain death [None]
